FAERS Safety Report 23513810 (Version 1)
Quarter: 2024Q1

REPORT INFORMATION
  Report Type: Report from Study
  Country: US (occurrence: US)
  Receive Date: 20240212
  Receipt Date: 20240212
  Transmission Date: 20240410
  Serious: Yes (Other)
  Sender: FDA-Public Use
  Company Number: US-BAYER-2024A022028

PATIENT
  Age: 54 Year
  Sex: Female

DRUGS (4)
  1. ADEMPAS [Suspect]
     Active Substance: RIOCIGUAT
     Indication: Pulmonary arterial hypertension
     Dosage: UNK
  2. ADEMPAS [Suspect]
     Active Substance: RIOCIGUAT
     Indication: Pulmonary arterial hypertension
     Dosage: 2.5 MG, TID
     Route: 048
     Dates: start: 202307
  3. UPTRAVI [Concomitant]
     Active Substance: SELEXIPAG
     Dosage: UNK UNK, BID
  4. UPTRAVI [Concomitant]
     Active Substance: SELEXIPAG
     Dosage: UNK, QD

REACTIONS (1)
  - Liver disorder [None]
